FAERS Safety Report 9605698 (Version 2)
Quarter: 2014Q3

REPORT INFORMATION
  Report Type: Spontaneous
  Country: US (occurrence: US)
  Receive Date: 20131008
  Receipt Date: 20140812
  Transmission Date: 20150326
  Serious: Yes (Death, Hospitalization, Other)
  Sender: FDA-Public Use
  Company Number: US-CELGENEUS-163-21880-13100135

PATIENT
  Age: 73 Year
  Sex: Female

DRUGS (5)
  1. ZOLEDRONIC ACID [Concomitant]
     Active Substance: ZOLEDRONIC ACID
     Indication: HEPATITIS B
     Dosage: 4 MILLIGRAM
     Route: 065
  2. REVLIMID [Suspect]
     Active Substance: LENALIDOMIDE
     Indication: PLASMA CELL MYELOMA
     Dosage: 5 MILLIGRAM
     Route: 048
  3. BORTEZOMIB [Suspect]
     Active Substance: BORTEZOMIB
     Indication: PLASMA CELL MYELOMA
     Dosage: 1.3 MILLIGRAM/SQ. METER
     Route: 065
  4. ONDANSETRON [Concomitant]
     Active Substance: ONDANSETRON
     Indication: HEPATITIS B
     Dosage: 16 MILLIGRAM
     Route: 065
  5. DOXORUBICIN [Concomitant]
     Active Substance: DOXORUBICIN
     Indication: PLASMA CELL MYELOMA
     Dosage: 30 MILLIGRAM
     Route: 065

REACTIONS (6)
  - Death [Fatal]
  - Sepsis [Unknown]
  - Spinal fracture [Unknown]
  - Hepatitis B [Unknown]
  - General physical health deterioration [Unknown]
  - Venous thrombosis [Unknown]
